FAERS Safety Report 14102045 (Version 1)
Quarter: 2017Q4

REPORT INFORMATION
  Report Type: Spontaneous
  Country: US (occurrence: US)
  Receive Date: 20171018
  Receipt Date: 20171018
  Transmission Date: 20180321
  Serious: Yes (Hospitalization)
  Sender: FDA-Public Use
  Company Number: US-ROCHE-2008000

PATIENT
  Age: 76 Year
  Sex: Female

DRUGS (48)
  1. MACRODANTIN [Concomitant]
     Active Substance: NITROFURANTOIN
  2. PROGESTERONE. [Concomitant]
     Active Substance: PROGESTERONE
  3. METOCLOPRAMID [Concomitant]
     Active Substance: METOCLOPRAMIDE
  4. CIPROFLOXACIN. [Concomitant]
     Active Substance: CIPROFLOXACIN
  5. AVELOX [Concomitant]
     Active Substance: MOXIFLOXACIN HYDROCHLORIDE
  6. LORAZEPAM. [Concomitant]
     Active Substance: LORAZEPAM
  7. FLUTICASONE. [Concomitant]
     Active Substance: FLUTICASONE
  8. ACTONEL [Suspect]
     Active Substance: RISEDRONATE SODIUM
     Indication: OSTEOPOROSIS PROPHYLAXIS
  9. CORTEF [Concomitant]
     Active Substance: HYDROCORTISONE
  10. FELODIPINE. [Concomitant]
     Active Substance: FELODIPINE
  11. NEXIUM [Concomitant]
     Active Substance: ESOMEPRAZOLE MAGNESIUM
  12. ZOCOR [Concomitant]
     Active Substance: SIMVASTATIN
  13. AZITHROMYCIN ANHYDROUS. [Concomitant]
     Active Substance: AZITHROMYCIN ANHYDROUS
  14. TESSALON [Concomitant]
     Active Substance: BENZONATATE
  15. BROMFENEX [Concomitant]
     Active Substance: BROMPHENIRAMINE MALEATE\PSEUDOEPHEDRINE HYDROCHLORIDE
  16. MUCINEX [Concomitant]
     Active Substance: GUAIFENESIN
  17. EDTA [Concomitant]
     Active Substance: EDETIC ACID
  18. VITAMIN A [Concomitant]
     Active Substance: VITAMIN A
  19. BONIVA [Suspect]
     Active Substance: IBANDRONATE SODIUM
     Indication: OSTEOPOROSIS PROPHYLAXIS
  20. FOSAMAX [Suspect]
     Active Substance: ALENDRONATE SODIUM
     Indication: OSTEOPOROSIS
     Route: 048
     Dates: start: 2000, end: 200610
  21. FOSAMAX [Suspect]
     Active Substance: ALENDRONATE SODIUM
     Indication: OSTEOPOROSIS PROPHYLAXIS
  22. PREDNISONE. [Concomitant]
     Active Substance: PREDNISONE
  23. WELLBUTRIN [Concomitant]
     Active Substance: BUPROPION HYDROCHLORIDE
  24. MELATONIN [Concomitant]
     Active Substance: MELATONIN
  25. MIRALAX [Concomitant]
     Active Substance: POLYETHYLENE GLYCOL 3350
  26. OCEAN NASAL [Concomitant]
  27. BONIVA [Suspect]
     Active Substance: IBANDRONATE SODIUM
     Indication: OSTEOPOROSIS
     Route: 048
     Dates: start: 200802, end: 2011
  28. REQUIP [Concomitant]
     Active Substance: ROPINIROLE HYDROCHLORIDE
  29. CELEBREX [Concomitant]
     Active Substance: CELECOXIB
  30. TOPROL XL [Concomitant]
     Active Substance: METOPROLOL SUCCINATE
  31. AMOXIL [Concomitant]
     Active Substance: AMOXICILLIN
  32. CODEINE/PROMETHAZINE HYDROCHLORIDE [Concomitant]
  33. VITAMIN C [Concomitant]
     Active Substance: ASCORBIC ACID
  34. ACTONEL [Suspect]
     Active Substance: RISEDRONATE SODIUM
     Indication: OSTEOPOROSIS
     Route: 048
     Dates: start: 200606, end: 200802
  35. ACTONEL [Suspect]
     Active Substance: RISEDRONATE SODIUM
     Indication: OSTEOPENIA
  36. FOSAMAX [Suspect]
     Active Substance: ALENDRONATE SODIUM
     Indication: OSTEOPENIA
  37. CYCLOBENZAPRINE. [Concomitant]
     Active Substance: CYCLOBENZAPRINE
  38. OXYCODONE [Concomitant]
     Active Substance: OXYCODONE
  39. VICODIN [Concomitant]
     Active Substance: ACETAMINOPHEN\HYDROCODONE BITARTRATE
  40. PROTONIX [Concomitant]
     Active Substance: PANTOPRAZOLE SODIUM
  41. SULFAMETHOXAZOLE/TRIMETHOPRIM [Concomitant]
     Active Substance: SULFAMETHOXAZOLE\TRIMETHOPRIM
     Route: 065
  42. AFRIN (UNITED STATES) [Concomitant]
  43. OMEGA-3 TRIGLYCERIDES [Concomitant]
  44. BONIVA [Suspect]
     Active Substance: IBANDRONATE SODIUM
     Indication: OSTEOPENIA
  45. TESTOSTERONE. [Concomitant]
     Active Substance: TESTOSTERONE
  46. SINGULAIR [Concomitant]
     Active Substance: MONTELUKAST SODIUM
  47. ETHYL CHLORIDE [Concomitant]
     Active Substance: ETHYL CHLORIDE
  48. CHEMET [Concomitant]
     Active Substance: SUCCIMER

REACTIONS (9)
  - Stress fracture [Recovered/Resolved]
  - Fall [Recovered/Resolved]
  - Fracture displacement [Recovered/Resolved]
  - Arthralgia [Recovered/Resolved]
  - Osteoporotic fracture [Unknown]
  - Femur fracture [Unknown]
  - Low turnover osteopathy [Unknown]
  - Pain in extremity [Recovered/Resolved]
  - Osteogenesis imperfecta [Unknown]

NARRATIVE: CASE EVENT DATE: 201007
